FAERS Safety Report 4492943-8 (Version None)
Quarter: 2004Q4

REPORT INFORMATION
  Report Type: 
  Country: None (occurrence: None)
  Receive Date: 20041102
  Receipt Date: 20041015
  Transmission Date: 20050328
  Serious: No
  Sender: FDA-Public Use
  Company Number: 9087

PATIENT
  Age: 67 Year
  Sex: Male

DRUGS (4)
  1. FLUCONAZOLE [Suspect]
     Indication: PNEUMONIA
     Dosage: IV
     Route: 042
  2. CYTARABINE [Suspect]
     Indication: MYELODYSPLASTIC SYNDROME
     Dosage: 15 MG BID
  3. PANIPENEM/BETAMIPRON [Suspect]
     Indication: PNEUMONIA
  4. ACLARUBICIN [Suspect]
     Indication: MYELODYSPLASTIC SYNDROME
     Dosage: 20 MG

REACTIONS (5)
  - BONE MARROW DEPRESSION [None]
  - DRUG INTERACTION [None]
  - PANCREATITIS [None]
  - PNEUMONIA [None]
  - REFRACTORY ANAEMIA WITH AN EXCESS OF BLASTS [None]
